FAERS Safety Report 15154252 (Version 2)
Quarter: 2018Q3

REPORT INFORMATION
  Report Type: Spontaneous
  Country: US (occurrence: US)
  Receive Date: 20180717
  Receipt Date: 20180717
  Transmission Date: 20181010
  Serious: No
  Sender: FDA-Public Use
  Company Number: US-BRISTOL-MYERS SQUIBB COMPANY-BMS-2018-064719

PATIENT
  Age: 52 Year
  Sex: Male

DRUGS (1)
  1. KENALOG?40 [Suspect]
     Active Substance: TRIAMCINOLONE ACETONIDE
     Indication: ARTHROPATHY
     Dosage: 40 MG, ONCE
     Route: 042

REACTIONS (1)
  - Incorrect route of drug administration [Unknown]
